FAERS Safety Report 20673972 (Version 1)
Quarter: 2022Q2

REPORT INFORMATION
  Report Type: Report from Study
  Country: US (occurrence: US)
  Receive Date: 20220405
  Receipt Date: 20220405
  Transmission Date: 20220720
  Serious: Yes (Other)
  Sender: FDA-Public Use
  Company Number: US-BRISTOL-MYERS SQUIBB COMPANY-2022-015062

PATIENT
  Age: 71 Year
  Sex: Male
  Weight: 63.6 kg

DRUGS (11)
  1. REVLIMID [Suspect]
     Active Substance: LENALIDOMIDE
     Indication: Plasma cell myeloma
     Route: 048
     Dates: start: 20201114
  2. VELCADE [Concomitant]
     Active Substance: BORTEZOMIB
  3. CALCIUM 600+VITAMIN D3 400 [Concomitant]
  4. FUROSEMIDE CF [Concomitant]
  5. ATORVASTATIN CALCIUM [Concomitant]
     Active Substance: ATORVASTATIN CALCIUM
  6. CLOPIDOGREL ALMUS [CLOPIDOGREL] [Concomitant]
  7. VITAMIN C [Concomitant]
     Active Substance: ASCORBIC ACID
  8. DEXAMETHASONE FUSO [Concomitant]
  9. COENZYME Q10 [Concomitant]
     Active Substance: DIETARY SUPPLEMENT\UBIDECARENONE
  10. CARVEDILOL GEA [Concomitant]
  11. ASPIRIN [Concomitant]
     Active Substance: ASPIRIN

REACTIONS (4)
  - Rash pruritic [Unknown]
  - Dry skin [Unknown]
  - Dental discomfort [Unknown]
  - Laboratory test abnormal [Unknown]
